FAERS Safety Report 12921509 (Version 1)
Quarter: 2016Q4

REPORT INFORMATION
  Report Type: Spontaneous
  Country: ES (occurrence: ES)
  Receive Date: 20161108
  Receipt Date: 20161108
  Transmission Date: 20170207
  Serious: Yes (Death, Hospitalization, Other)
  Sender: FDA-Public Use
  Company Number: ES-CELGENEUS-ESP-2016106730

PATIENT
  Age: 79 Year
  Sex: Female

DRUGS (2)
  1. AZACITIDINE. [Suspect]
     Active Substance: AZACITIDINE
     Indication: BLASTIC PLASMACYTOID DENDRITIC CELL NEOPLASIA
     Route: 065
     Dates: start: 201404, end: 201502
  2. AZACITIDINE. [Suspect]
     Active Substance: AZACITIDINE
     Route: 065
     Dates: start: 201505

REACTIONS (4)
  - Neutropenia [Unknown]
  - Multiple organ dysfunction syndrome [Fatal]
  - Thrombocytopenia [Unknown]
  - Blastic plasmacytoid dendritic cell neoplasia [Unknown]

NARRATIVE: CASE EVENT DATE: 201505
